FAERS Safety Report 24047429 (Version 3)
Quarter: 2025Q1

REPORT INFORMATION
  Report Type: Spontaneous
  Country: US (occurrence: US)
  Receive Date: 20240703
  Receipt Date: 20250203
  Transmission Date: 20250409
  Serious: Yes (Disabling, Other)
  Sender: AMGEN
  Company Number: US-AMGEN-USASP2024127639

PATIENT
  Age: 49 Year
  Sex: Male

DRUGS (13)
  1. TEPEZZA [Suspect]
     Active Substance: TEPROTUMUMAB-TRBW
     Indication: Endocrine ophthalmopathy
     Dosage: UNK, Q3WK (FIRST INFUSION)
     Route: 042
     Dates: start: 2022
  2. TEPEZZA [Suspect]
     Active Substance: TEPROTUMUMAB-TRBW
     Indication: Graves^ disease
     Dosage: 20 MILLIGRAM/KILOGRAM, Q3WK (INFUSION, 2400 MILLIGRAM TOTAL ADMINISTERED, 100 MILLIGRAM WASTED)
     Route: 042
     Dates: start: 20220503
  3. TEPEZZA [Suspect]
     Active Substance: TEPROTUMUMAB-TRBW
     Dosage: 20 MILLIGRAM/KILOGRAM, Q3WK (INFUSION, 2340 MILLIGRAM ADMINISTRED, 160 MILLIGRAM WASTED)
     Route: 042
     Dates: start: 20220524
  4. TEPEZZA [Suspect]
     Active Substance: TEPROTUMUMAB-TRBW
     Dosage: 20 MILLIGRAM/KILOGRAM, Q3WK (INFUSION, 2380 MILLIGRAM ADMINISTRED, 120 MILLIGRAM WASTED)
     Route: 042
     Dates: start: 20220614
  5. TEPEZZA [Suspect]
     Active Substance: TEPROTUMUMAB-TRBW
     Dosage: 20 MILLIGRAM/KILOGRAM, Q3WK (INFUSION, 2370 MILLIGRAM ADMINISTRED, 130 MILLIGRAM WASTED)
     Route: 042
     Dates: start: 20220712
  6. TEPEZZA [Suspect]
     Active Substance: TEPROTUMUMAB-TRBW
     Dosage: 20 MILLIGRAM/KILOGRAM, Q3WK (INFUSION, 2350 MILLIGRAM ADMINISTRED, 150 MILLIGRAM WASTED)
     Route: 042
     Dates: start: 20220802
  7. TEPEZZA [Suspect]
     Active Substance: TEPROTUMUMAB-TRBW
     Dosage: 20 MILLIGRAM/KILOGRAM, Q3WK (INFUSION, 2300 MILLIGRAM ADMINISTRED, 200 MILLIGRAM WASTED)
     Route: 042
     Dates: start: 20220830
  8. TEPEZZA [Suspect]
     Active Substance: TEPROTUMUMAB-TRBW
     Dosage: UNK, Q3WK (LAST INFUSION)
     Route: 042
     Dates: start: 2023
  9. SODIUM CHLORIDE [Concomitant]
     Active Substance: SODIUM CHLORIDE
  10. Calcidol [Concomitant]
     Route: 065
  11. CALCIUM [Concomitant]
     Active Substance: CALCIUM
     Route: 065
  12. DRY EYE OMEGA BENEFITS [Concomitant]
     Dosage: UNK UNK, QD, 4 SOFTGELS DAILY WITH FOOD
     Route: 065
     Dates: start: 20211101
  13. SYNTHROID [Concomitant]
     Active Substance: LEVOTHYROXINE SODIUM
     Dosage: 1 DOSAGE FORM, QD
     Route: 048

REACTIONS (22)
  - Deafness permanent [Not Recovered/Not Resolved]
  - Endocrine ophthalmopathy [Unknown]
  - Graves^ disease [Unknown]
  - Physical disability [Unknown]
  - Injury [Unknown]
  - Anxiety [Unknown]
  - Anhedonia [Unknown]
  - Discomfort [Unknown]
  - Pain [Unknown]
  - Emotional distress [Unknown]
  - Tinnitus [Not Recovered/Not Resolved]
  - Product use complaint [Unknown]
  - Monocyte count decreased [Unknown]
  - Neutrophil count increased [Unknown]
  - Blood calcium decreased [Unknown]
  - Anion gap increased [Unknown]
  - Blood lactic acid increased [Unknown]
  - Lymphocyte count increased [Unknown]
  - Blood pressure diastolic decreased [Unknown]
  - Blood pressure systolic increased [Unknown]
  - Inappropriate schedule of product administration [Unknown]
  - Blood glucose increased [Unknown]

NARRATIVE: CASE EVENT DATE: 20220130
